FAERS Safety Report 9671197 (Version 1)
Quarter: 2013Q4

REPORT INFORMATION
  Report Type: Spontaneous
  Country: JP (occurrence: JP)
  Receive Date: 20131106
  Receipt Date: 20131106
  Transmission Date: 20140711
  Serious: Yes (Death)
  Sender: FDA-Public Use
  Company Number: JP-ASTELLAS-2013JP011980

PATIENT
  Age: 73 Year
  Sex: Male

DRUGS (7)
  1. FUNGUARD [Suspect]
     Indication: ORBITAL APEX SYNDROME
     Dosage: UNK
     Route: 065
  2. FUNGUARD [Suspect]
     Indication: BRONCHOPULMONARY ASPERGILLOSIS
  3. CORTICOSTEROID NOS [Concomitant]
     Indication: ORBITAL APEX SYNDROME
     Dosage: UNK
     Route: 065
  4. VORICONAZOLE [Concomitant]
     Indication: ORBITAL APEX SYNDROME
     Dosage: UNK
     Route: 065
  5. VORICONAZOLE [Concomitant]
     Indication: BRONCHOPULMONARY ASPERGILLOSIS
  6. ITRACONAZOLE [Concomitant]
     Indication: ORBITAL APEX SYNDROME
     Dosage: UNK
     Route: 065
  7. ITRACONAZOLE [Concomitant]
     Indication: BRONCHOPULMONARY ASPERGILLOSIS

REACTIONS (2)
  - Drug ineffective [Unknown]
  - Meningitis aspergillus [Fatal]
